FAERS Safety Report 10411465 (Version 2)
Quarter: 2014Q3

REPORT INFORMATION
  Report Type: Spontaneous
  Country: US (occurrence: US)
  Receive Date: 20140827
  Receipt Date: 20140908
  Transmission Date: 20150326
  Serious: Yes (Death, Hospitalization, Other)
  Sender: FDA-Public Use
  Company Number: US-AMGEN-USASP2014064696

PATIENT
  Age: 77 Year
  Sex: Female
  Weight: 97.05 kg

DRUGS (1)
  1. PROLIA [Suspect]
     Active Substance: DENOSUMAB
     Indication: OSTEOPOROSIS
     Dosage: 60 MG, Q6MO
     Route: 058
     Dates: start: 20130930

REACTIONS (4)
  - Myocardial infarction [Fatal]
  - Bronchoscopy [Unknown]
  - Echocardiogram [Unknown]
  - Coronary artery bypass [Unknown]
